FAERS Safety Report 16791213 (Version 1)
Quarter: 2019Q3

REPORT INFORMATION
  Report Type: Spontaneous
  Country: US (occurrence: US)
  Receive Date: 20190910
  Receipt Date: 20190910
  Transmission Date: 20191005
  Serious: No
  Sender: FDA-Public Use
  Company Number: US-PERRIGO-19US000453

PATIENT
  Sex: Female
  Weight: 56.69 kg

DRUGS (2)
  1. EVAMIST [Suspect]
     Active Substance: ESTRADIOL
     Indication: HORMONE REPLACEMENT THERAPY
     Dosage: 3.06 MG, QD
     Route: 062
     Dates: start: 2014, end: 201807
  2. EVAMIST [Suspect]
     Active Substance: ESTRADIOL
     Dosage: UNKNOWN, QD
     Route: 062
     Dates: start: 2017, end: 2018

REACTIONS (2)
  - Therapeutic product effect decreased [Unknown]
  - Underdose [Recovered/Resolved]

NARRATIVE: CASE EVENT DATE: 2017
